FAERS Safety Report 7514596-4 (Version None)
Quarter: 2011Q2

REPORT INFORMATION
  Report Type: 
  Country: None (occurrence: None)
  Receive Date: 20110520
  Receipt Date: 20110509
  Transmission Date: 20111010
  Serious: Yes (Death)
  Sender: FDA-Public Use
  Company Number: SPI201100126

PATIENT
  Age: 94 Year
  Sex: Male

DRUGS (1)
  1. AMITIZA [Suspect]
     Dosage: ORAL
     Route: 048

REACTIONS (1)
  - CARDIAC FAILURE CONGESTIVE [None]
